FAERS Safety Report 13835611 (Version 1)
Quarter: 2017Q3

REPORT INFORMATION
  Report Type: Spontaneous
  Country: DE (occurrence: DE)
  Receive Date: 20170804
  Receipt Date: 20170804
  Transmission Date: 20171127
  Serious: Yes (Hospitalization)
  Sender: FDA-Public Use
  Company Number: DE-JNJFOC-20170802015

PATIENT
  Age: 90 Year
  Sex: Male
  Weight: 71 kg

DRUGS (4)
  1. XARELTO [Suspect]
     Active Substance: RIVAROXABAN
     Indication: PULMONARY EMBOLISM
     Route: 048
     Dates: start: 201706
  2. PHENPROCOUMON [Concomitant]
     Active Substance: PHENPROCOUMON
     Route: 065
     Dates: end: 201705
  3. FRAGMIN [Concomitant]
     Active Substance: DALTEPARIN SODIUM
     Indication: CATHETERISATION CARDIAC
     Route: 058
     Dates: start: 201707, end: 20170725
  4. PLAVIX [Concomitant]
     Active Substance: CLOPIDOGREL BISULFATE
     Indication: STENT PLACEMENT
     Route: 048
     Dates: start: 201706

REACTIONS (1)
  - Coronary angioplasty [Recovered/Resolved]

NARRATIVE: CASE EVENT DATE: 20170720
